FAERS Safety Report 9142674 (Version 2)
Quarter: 2013Q2

REPORT INFORMATION
  Report Type: Report from Study
  Country: JP (occurrence: JP)
  Receive Date: 20130306
  Receipt Date: 20130401
  Transmission Date: 20140414
  Serious: Yes (Death)
  Sender: FDA-Public Use
  Company Number: JP-JNJFOC-20130300676

PATIENT
  Sex: Male
  Weight: 55 kg

DRUGS (7)
  1. ONEDURO [Suspect]
     Indication: CANCER PAIN
     Route: 062
     Dates: start: 20130104, end: 20130211
  2. SOLITA- NO 3 [Concomitant]
     Indication: CANCER PAIN
     Route: 041
     Dates: start: 20130104, end: 20130104
  3. GASTER [Concomitant]
     Indication: CANCER PAIN
     Route: 065
     Dates: start: 20130104, end: 20130104
  4. GASTER [Concomitant]
     Indication: CANCER PAIN
     Route: 065
     Dates: start: 20130105, end: 20130211
  5. ROPION [Concomitant]
     Indication: CANCER PAIN
     Route: 042
     Dates: start: 20130104, end: 20130211
  6. TWINPAL [Concomitant]
     Indication: CANCER PAIN
     Route: 041
     Dates: start: 20130104, end: 20130211
  7. DORMICUM [Concomitant]
     Indication: CANCER PAIN
     Route: 030
     Dates: start: 20130108, end: 20130113

REACTIONS (2)
  - Prostate cancer [Fatal]
  - Wrong technique in drug usage process [Unknown]
